FAERS Safety Report 7713313-2 (Version None)
Quarter: 2011Q3

REPORT INFORMATION
  Report Type: 
  Country: None (occurrence: None)
  Receive Date: 20110826
  Receipt Date: 20110818
  Transmission Date: 20111222
  Serious: Yes (Other)
  Sender: FDA-Public Use
  Company Number: US-GENENTECH-323335

PATIENT
  Sex: Female

DRUGS (6)
  1. PREDNISONE [Concomitant]
     Indication: PRODUCT USED FOR UNKNOWN INDICATION
  2. VENTOLIN HFA [Concomitant]
     Indication: PRODUCT USED FOR UNKNOWN INDICATION
  3. OMALIZUMAB [Suspect]
     Indication: ASTHMA
     Dosage: UNK
     Route: 058
     Dates: start: 20110428
  4. DUONEB [Concomitant]
     Indication: PRODUCT USED FOR UNKNOWN INDICATION
  5. SINGULAIR [Concomitant]
     Indication: PRODUCT USED FOR UNKNOWN INDICATION
  6. ADVAIR DISKUS 100/50 [Concomitant]
     Indication: PRODUCT USED FOR UNKNOWN INDICATION

REACTIONS (8)
  - DYSPHAGIA [None]
  - DYSPNOEA [None]
  - NAUSEA [None]
  - WHEEZING [None]
  - HEART RATE INCREASED [None]
  - FEELING HOT [None]
  - ASTHENIA [None]
  - DIZZINESS [None]
